FAERS Safety Report 7752317-0 (Version None)
Quarter: 2011Q3

REPORT INFORMATION
  Report Type: 
  Country: None (occurrence: None)
  Receive Date: 20110915
  Receipt Date: 20110902
  Transmission Date: 20111222
  Serious: No
  Sender: FDA-Public Use
  Company Number: CA-ELI_LILLY_AND_COMPANY-CA201109000625

PATIENT
  Sex: Male

DRUGS (15)
  1. LOXAPINE HCL [Concomitant]
  2. BISOPROLOL FUMARATE [Concomitant]
  3. RISPERDAL [Concomitant]
  4. ZYPREXA ZYDIS [Suspect]
     Dosage: 15 MG, QD
  5. ZIPRASIDONE HYDROCHLORIDE [Concomitant]
  6. HALDOL [Concomitant]
  7. ZYPREXA [Suspect]
     Indication: SCHIZOPHRENIA
     Dosage: 10 MG, QD
  8. ZYPREXA ZYDIS [Suspect]
     Dosage: 20 MG, QD
  9. ZYPREXA [Suspect]
     Dosage: 15 MG, QD
  10. TRAZODONE HCL [Concomitant]
  11. ZYPREXA [Suspect]
     Dosage: 2.5 MG, PRN
  12. ZYPREXA ZYDIS [Suspect]
     Dosage: 5 MG, QD
  13. ZYPREXA ZYDIS [Suspect]
     Indication: SCHIZOPHRENIA
     Dosage: 10 MG, QD
  14. BENZTROPINE MESYLATE [Concomitant]
  15. ZYBAN [Concomitant]

REACTIONS (8)
  - DIABETES MELLITUS [None]
  - HYPERGLYCAEMIA [None]
  - WHITE BLOOD CELL COUNT INCREASED [None]
  - BLOOD TRIGLYCERIDES INCREASED [None]
  - ALANINE AMINOTRANSFERASE INCREASED [None]
  - BLOOD PRESSURE INCREASED [None]
  - BLOOD CHOLESTEROL INCREASED [None]
  - ASPARTATE AMINOTRANSFERASE INCREASED [None]
